FAERS Safety Report 6670809-2 (Version None)
Quarter: 2010Q2

REPORT INFORMATION
  Report Type: 
  Country: None (occurrence: None)
  Receive Date: 20100406
  Receipt Date: 20100406
  Transmission Date: 20101027
  Serious: Yes (Life-Threatening)
  Sender: FDA-Public Use
  Company Number: None

PATIENT
  Age: 76 Year
  Sex: Female
  Weight: 32.659 kg

DRUGS (1)
  1. VISIPAQUE 320 [Suspect]
     Indication: ABDOMINAL PAIN
     Dosage: 99 ML 1  DOSE IV BOLUS
     Route: 040
     Dates: start: 20100125, end: 20100125

REACTIONS (3)
  - ACUTE MYOCARDIAL INFARCTION [None]
  - ANAPHYLACTIC REACTION [None]
  - HYPOXIA [None]
